FAERS Safety Report 14565558 (Version 12)
Quarter: 2018Q2

REPORT INFORMATION
  Report Type: Spontaneous
  Country: PL (occurrence: PL)
  Receive Date: 20180223
  Receipt Date: 20180610
  Transmission Date: 20180711
  Serious: Yes (Death, Hospitalization, Other)
  Sender: FDA-Public Use
  Company Number: PL-AUROBINDO-AUR-APL-2018-008848

PATIENT
  Age: 56 Year
  Sex: Female

DRUGS (46)
  1. FLUCONAZOLE. [Suspect]
     Active Substance: FLUCONAZOLE
     Indication: PRODUCT USED FOR UNKNOWN INDICATION
     Dosage: ()
     Route: 065
  2. DOXORUBICIN [Suspect]
     Active Substance: DOXORUBICIN
     Dosage: DOSAGE FORM: UNSPECIFIED, VD-PACE ()
     Route: 065
  3. DOXORUBICIN [Suspect]
     Active Substance: DOXORUBICIN
     Dosage: ()
     Route: 065
  4. THALIDOMIDE [Suspect]
     Active Substance: THALIDOMIDE
     Indication: CHEMOTHERAPY
     Dosage: UNK
     Route: 065
  5. CYCLOPHOSPHAMIDE. [Suspect]
     Active Substance: CYCLOPHOSPHAMIDE
     Indication: PLASMA CELL MYELOMA
     Dosage: UNK
     Route: 065
  6. CISPLATIN. [Suspect]
     Active Substance: CISPLATIN
     Indication: PLASMA CELL MYELOMA
     Dosage: UNK
     Route: 065
  7. MICAFUNGIN [Suspect]
     Active Substance: MICAFUNGIN
     Route: 065
  8. MICAFUNGIN [Suspect]
     Active Substance: MICAFUNGIN
     Route: 065
  9. ENDOXANA [Suspect]
     Active Substance: CYCLOPHOSPHAMIDE
     Dosage: DOSAGE FORM: UNSPECIFIED, VD-PACE ()
     Route: 065
  10. CISPLATIN. [Suspect]
     Active Substance: CISPLATIN
     Indication: CHEMOTHERAPY
     Dosage: UNK
     Route: 065
  11. MICAFUNGIN [Suspect]
     Active Substance: MICAFUNGIN
     Indication: PRODUCT USED FOR UNKNOWN INDICATION
     Dosage: 200 MG, QD
     Route: 065
  12. MICAFUNGIN [Suspect]
     Active Substance: MICAFUNGIN
     Route: 065
  13. THALIDOMIDE [Suspect]
     Active Substance: THALIDOMIDE
     Dosage: DOSAGE FORM: UNSPECIFIED, CTD REGIMEN ()
     Route: 065
  14. THALIDOMIDE [Suspect]
     Active Substance: THALIDOMIDE
     Dosage: UNK; UNSPECIFIED, CTD REGIMEN ()
     Route: 065
  15. CYCLOPHOSPHAMIDE. [Suspect]
     Active Substance: CYCLOPHOSPHAMIDE
     Indication: CHEMOTHERAPY
     Dosage: UNK
     Route: 065
  16. CYCLOPHOSPHAMIDE. [Suspect]
     Active Substance: CYCLOPHOSPHAMIDE
     Dosage: ()
     Route: 065
  17. MICAFUNGIN [Suspect]
     Active Substance: MICAFUNGIN
     Dosage: 200 MG, QD
     Route: 065
  18. IMMUNOGLOBULIN                     /00025201/ [Concomitant]
     Active Substance: HUMAN IMMUNOGLOBULIN G
     Indication: PRODUCT USED FOR UNKNOWN INDICATION
     Dosage: ()
     Route: 065
  19. BENDAMUSTINE [Suspect]
     Active Substance: BENDAMUSTINE
     Indication: PLASMA CELL MYELOMA
     Dosage: ()
     Route: 065
  20. MELPHALAN. [Suspect]
     Active Substance: MELPHALAN
     Indication: PLASMA CELL MYELOMA
     Dosage: 120 MG
     Route: 065
  21. MICAFUNGIN [Suspect]
     Active Substance: MICAFUNGIN
     Indication: CANDIDA INFECTION
     Dosage: 100 MG, QD
     Route: 065
  22. MICAFUNGIN [Suspect]
     Active Substance: MICAFUNGIN
     Route: 065
  23. DEXAMETHASONE. [Suspect]
     Active Substance: DEXAMETHASONE
     Dosage: DOSAGE FORM: UNSPECIFIED, UNK, CYCLIC (VD-PACE) ()
     Route: 065
  24. MELPHALAN. [Suspect]
     Active Substance: MELPHALAN
     Dosage: 120 MG
     Route: 065
  25. CISPLATIN. [Suspect]
     Active Substance: CISPLATIN
     Dosage: UNK
     Route: 065
  26. ETOPOSIDE. [Suspect]
     Active Substance: ETOPOSIDE
     Indication: CHEMOTHERAPY
     Dosage: ()
     Route: 065
  27. DOXORUBICIN [Suspect]
     Active Substance: DOXORUBICIN
     Indication: CHEMOTHERAPY
     Dosage: ()
     Route: 065
  28. DOXORUBICIN [Suspect]
     Active Substance: DOXORUBICIN
     Dosage: UNK ()
     Route: 065
  29. CISPLATIN. [Suspect]
     Active Substance: CISPLATIN
     Dosage: UNK
     Route: 065
  30. DEXAMETHASONE. [Suspect]
     Active Substance: DEXAMETHASONE
     Indication: CHEMOTHERAPY
     Dosage: UNK
     Route: 065
  31. BORTEZOMIB [Suspect]
     Active Substance: BORTEZOMIB
     Indication: CHEMOTHERAPY
     Dosage: ()
     Route: 065
  32. BORTEZOMIB [Suspect]
     Active Substance: BORTEZOMIB
     Indication: PLASMA CELL MYELOMA
  33. BENDAMUSTINE [Suspect]
     Active Substance: BENDAMUSTINE
     Indication: PRODUCT USED FOR UNKNOWN INDICATION
     Dosage: UNK UNK, QCYCLE ()
     Route: 042
  34. LENALIDOMIDE [Suspect]
     Active Substance: LENALIDOMIDE
     Indication: PLASMA CELL MYELOMA
     Dosage: UNK
     Route: 065
  35. MICAFUNGIN [Suspect]
     Active Substance: MICAFUNGIN
     Dosage: 100 MG, QD
     Route: 065
  36. DEXAMETHASONE. [Suspect]
     Active Substance: DEXAMETHASONE
     Indication: PLASMA CELL MYELOMA
     Dosage: DOSAGE FORM: UNSPECIFIED, CTD REGIMEN ()
     Route: 065
  37. DEXAMETHASONE. [Suspect]
     Active Substance: DEXAMETHASONE
     Dosage: VD-PACE; DOSAGE FORM: UNSPECIFIED, CTD REGIMEN ()
     Route: 065
  38. ENDOXANA [Suspect]
     Active Substance: CYCLOPHOSPHAMIDE
     Dosage: ()
     Route: 065
  39. ETOPOSIDE. [Suspect]
     Active Substance: ETOPOSIDE
     Indication: PLASMA CELL MYELOMA
  40. DOXORUBICIN [Suspect]
     Active Substance: DOXORUBICIN
     Indication: PLASMA CELL MYELOMA
     Dosage: DOSAGE FORM: UNSPECIFIED, VD-PACE ()
     Route: 065
  41. MELPHALAN. [Suspect]
     Active Substance: MELPHALAN
     Dosage: DOSAGE FORM: UNSPECIFIED
     Route: 065
     Dates: start: 201703
  42. CISPLATIN. [Suspect]
     Active Substance: CISPLATIN
     Dosage: ()
     Route: 065
  43. ENDOXANA [Suspect]
     Active Substance: CYCLOPHOSPHAMIDE
     Indication: PLASMA CELL MYELOMA
     Dosage: ()
     Route: 065
  44. ENDOXANA [Suspect]
     Active Substance: CYCLOPHOSPHAMIDE
     Indication: CHEMOTHERAPY
     Dosage: UNK
     Route: 065
  45. ENDOXANA [Suspect]
     Active Substance: CYCLOPHOSPHAMIDE
     Dosage: DOSAGE FORM: UNSPECIFIED, CTD REGIMEN ()
     Route: 065
  46. ENDOXANA [Suspect]
     Active Substance: CYCLOPHOSPHAMIDE
     Dosage: DOSAGE FORM: UNSPECIFIED, CTD REGIMEN ()
     Route: 065

REACTIONS (26)
  - Mucosal inflammation [Fatal]
  - Plasma cell leukaemia [Fatal]
  - Nasal abscess [Fatal]
  - Pneumonia fungal [Fatal]
  - Pulmonary mycosis [Fatal]
  - Gastrointestinal fungal infection [Fatal]
  - Sinusitis [Fatal]
  - Sepsis [Fatal]
  - Herpes zoster [Fatal]
  - Varicella zoster virus infection [Fatal]
  - Disease progression [Fatal]
  - Oral fungal infection [Fatal]
  - Candida infection [Fatal]
  - Fungal infection [Fatal]
  - Plasma cell myeloma [Fatal]
  - Malignant neoplasm progression [Fatal]
  - Pancytopenia [Fatal]
  - Pain [Fatal]
  - Bacterial sepsis [Recovering/Resolving]
  - Sinus polyp [Fatal]
  - Oral disorder [Fatal]
  - Enterococcal sepsis [Fatal]
  - Abscess [Fatal]
  - Mucosal erosion [Fatal]
  - Fungal oesophagitis [Fatal]
  - Acute sinusitis [Fatal]

NARRATIVE: CASE EVENT DATE: 2017
